FAERS Safety Report 4622592-X (Version None)
Quarter: 2005Q1

REPORT INFORMATION
  Report Type: 
  Country: None (occurrence: None)
  Receive Date: 20050325
  Receipt Date: 20050325
  Transmission Date: 20050727
  Serious: Yes (Other)
  Sender: FDA-Public Use
  Company Number: None

PATIENT
  Age: 60 Year
  Sex: Female
  Weight: 108.8633 kg

DRUGS (1)
  1. BUPROPION HCL SR  200MG   WATSON/ EXPRESS SCRIPT [Suspect]
     Indication: DEPRESSION
     Dosage: 200MG  Q 12 ORAL
     Route: 048
     Dates: start: 20050321, end: 20050322

REACTIONS (2)
  - PHARMACEUTICAL PRODUCT COMPLAINT [None]
  - URTICARIA [None]
